FAERS Safety Report 6410774-6 (Version None)
Quarter: 2009Q4

REPORT INFORMATION
  Report Type: 
  Country: None (occurrence: None)
  Receive Date: 20091020
  Receipt Date: 20091020
  Transmission Date: 20100525
  Serious: Yes (Congenital Anomaly)
  Sender: FDA-Public Use
  Company Number: None

PATIENT
  Sex: Male
  Weight: 3.1752 kg

DRUGS (2)
  1. NITROFURANTOIN [Suspect]
     Indication: URINARY TRACT INFECTION
     Dosage: 100 MG 2 A DAY FOR 1 WEEK PO
     Route: 048
     Dates: start: 20080205, end: 20080211
  2. NITROFURANTOIN MACROCRYSTALLINE [Suspect]
     Indication: URINARY TRACT INFECTION
     Dosage: 100 MG 2 A DAY FOR 1 WEEK PO
     Route: 048
     Dates: start: 20080310, end: 20080316

REACTIONS (1)
  - MATERNAL DRUGS AFFECTING FOETUS [None]
